FAERS Safety Report 8317180-8 (Version None)
Quarter: 2012Q2

REPORT INFORMATION
  Report Type: 
  Country: None (occurrence: None)
  Receive Date: 20120427
  Receipt Date: 20120419
  Transmission Date: 20120825
  Serious: Yes (Other)
  Sender: FDA-Public Use
  Company Number: PHHY2012DE033755

PATIENT
  Sex: Female

DRUGS (1)
  1. GILENYA [Suspect]
     Indication: MULTIPLE SCLEROSIS
     Dosage: 0.5 MG, DAILY
     Route: 048
     Dates: start: 20120320

REACTIONS (3)
  - ELECTROCARDIOGRAM ST SEGMENT DEPRESSION [None]
  - MYOCARDIAL ISCHAEMIA [None]
  - ELECTROCARDIOGRAM T WAVE INVERSION [None]
